FAERS Safety Report 5673357-1 (Version None)
Quarter: 2008Q1

REPORT INFORMATION
  Report Type: 
  Country: None (occurrence: None)
  Receive Date: 20080319
  Receipt Date: 20080310
  Transmission Date: 20080703
  Serious: Yes (Hospitalization, Other)
  Sender: FDA-Public Use
  Company Number: BR-ABBOTT-08P-020-0439954-00

PATIENT
  Sex: Female
  Weight: 47 kg

DRUGS (3)
  1. HUMIRA [Suspect]
     Indication: RHEUMATOID ARTHRITIS
     Route: 058
     Dates: start: 20071113, end: 20080119
  2. AZATHIOPRINE [Concomitant]
     Indication: ANKYLOSING SPONDYLITIS
     Dates: start: 20050101
  3. METHOTREXATE [Concomitant]
     Indication: RHEUMATOID ARTHRITIS
     Route: 048

REACTIONS (5)
  - ANKYLOSING SPONDYLITIS [None]
  - ARTHRALGIA [None]
  - DRUG INEFFECTIVE [None]
  - PROCTOCOLITIS [None]
  - RHEUMATOID ARTHRITIS [None]
